FAERS Safety Report 4578398-3 (Version None)
Quarter: 2005Q1

REPORT INFORMATION
  Report Type: 
  Country: None (occurrence: None)
  Receive Date: 20050211
  Receipt Date: 20050201
  Transmission Date: 20050727
  Serious: Yes (Hospitalization)
  Sender: FDA-Public Use
  Company Number: ZA-BRISTOL-MYERS SQUIBB COMPANY-12854816

PATIENT
  Age: 24 Year
  Sex: Female

DRUGS (3)
  1. EFAVIRENZ CAPS [Suspect]
     Indication: HIV INFECTION
     Route: 048
     Dates: start: 20041117, end: 20041118
  2. STAVUDINE [Concomitant]
     Indication: HIV INFECTION
     Dates: start: 20041117
  3. LAMIVUDINE [Concomitant]
     Indication: HIV INFECTION
     Dates: start: 20041117

REACTIONS (1)
  - ANGIONEUROTIC OEDEMA [None]
